FAERS Safety Report 8553358-6 (Version None)
Quarter: 2012Q3

REPORT INFORMATION
  Report Type: 
  Country: None (occurrence: None)
  Receive Date: 20120725
  Receipt Date: 20120725
  Transmission Date: 20120928
  Serious: Yes (Life-Threatening, Hospitalization, Disabling)
  Sender: FDA-Public Use
  Company Number: None

PATIENT
  Sex: Male
  Weight: 106.3231 kg

DRUGS (13)
  1. METORPOLOL TARTRATE 300MG [Concomitant]
  2. DIPHENHYDRAMINE 50MG [Concomitant]
  3. ROSUVASTATIN [Concomitant]
  4. ISOSORBIDE DINITRATE 90MG [Concomitant]
  5. ONDANSETRON 8MG IV [Concomitant]
  6. CETUXIMAB 580MG [Concomitant]
  7. RANITIDINE 450MG [Concomitant]
  8. CARBOPLATIN [Suspect]
     Indication: HEAD AND NECK CANCER
     Dosage: 180-150MG 4 CYCLES IV DRIP
     Route: 041
     Dates: start: 20120319, end: 20120409
  9. ACETAMINOPHEN [Concomitant]
  10. LISINOPRIL [Concomitant]
  11. AMLODIPINE BESYLATE [Concomitant]
  12. DEXAMETHASONE SODIUM PHOSPHATE [Suspect]
     Indication: VOMITING
     Dosage: 20MG ONCE W/ CHEMO IV DRIP
     Route: 041
     Dates: start: 20120319, end: 20120425
  13. LEVOTHYROXINE NA 0.088MG [Concomitant]

REACTIONS (1)
  - CHEST PAIN [None]
